FAERS Safety Report 15430942 (Version 1)
Quarter: 2018Q3

REPORT INFORMATION
  Report Type: Spontaneous
  Country: US (occurrence: US)
  Receive Date: 20180926
  Receipt Date: 20180926
  Transmission Date: 20181010
  Serious: Yes (Hospitalization)
  Sender: FDA-Public Use
  Company Number: US-BAYER-2018-175216

PATIENT
  Age: 26 Year
  Sex: Female

DRUGS (3)
  1. BETASERON [Suspect]
     Active Substance: INTERFERON BETA-1B
     Dosage: UNK
     Dates: start: 201709
  2. ESCITALOPRAM [Concomitant]
     Active Substance: ESCITALOPRAM OXALATE
  3. PROVIGIL [Concomitant]
     Active Substance: MODAFINIL

REACTIONS (4)
  - Multiple sclerosis relapse [None]
  - Hypoaesthesia [None]
  - Asthenia [None]
  - Visual impairment [None]

NARRATIVE: CASE EVENT DATE: 20180913
